FAERS Safety Report 12932058 (Version 1)
Quarter: 2016Q4

REPORT INFORMATION
  Report Type: Spontaneous
  Country: US (occurrence: US)
  Receive Date: 20161111
  Receipt Date: 20161111
  Transmission Date: 20170207
  Serious: Yes (Other)
  Sender: FDA-Public Use
  Company Number: US-ROCHE-1852233

PATIENT
  Sex: Male

DRUGS (10)
  1. TAMSULOSINE [Concomitant]
     Active Substance: TAMSULOSIN HYDROCHLORIDE
     Dosage: EXTENDED RELEASE
     Route: 065
  2. RITUXAN [Suspect]
     Active Substance: RITUXIMAB
     Indication: PRODUCT USED FOR UNKNOWN INDICATION
     Route: 065
     Dates: end: 201401
  3. SUTENT [Suspect]
     Active Substance: SUNITINIB MALATE
     Indication: METASTATIC RENAL CELL CARCINOMA
     Dosage: 4 WEEKS ON AND 2 WEEKS OFF?28 DAYS SUPPLY
     Route: 048
     Dates: start: 201411, end: 201510
  4. CITALOPRAM [Concomitant]
     Active Substance: CITALOPRAM HYDROBROMIDE
     Route: 065
  5. ASA [Concomitant]
     Active Substance: ASPIRIN
     Route: 065
  6. VYTORIN [Concomitant]
     Active Substance: EZETIMIBE\SIMVASTATIN
     Dosage: 10/40 MG EVERY DAY
     Route: 065
  7. AMLODIPINE [Concomitant]
     Active Substance: AMLODIPINE BESYLATE
     Route: 065
  8. BENICAR [Concomitant]
     Active Substance: OLMESARTAN MEDOXOMIL
  9. FEXOFENADINE [Concomitant]
     Active Substance: FEXOFENADINE\FEXOFENADINE HYDROCHLORIDE
     Route: 065
  10. SUTENT [Suspect]
     Active Substance: SUNITINIB MALATE
     Route: 048
     Dates: end: 20160713

REACTIONS (13)
  - Overweight [Unknown]
  - Oral pain [Unknown]
  - Discomfort [Unknown]
  - Oropharyngeal pain [Unknown]
  - Nausea [Unknown]
  - Dry skin [Unknown]
  - White blood cell count decreased [Unknown]
  - Mucosal inflammation [Unknown]
  - Metastatic renal cell carcinoma [Unknown]
  - Diarrhoea [Unknown]
  - Fatigue [Unknown]
  - Anaemia [Unknown]
  - Mantle cell lymphoma [Unknown]
